FAERS Safety Report 10201920 (Version 1)
Quarter: 2014Q2

REPORT INFORMATION
  Report Type: Spontaneous
  Country: DE (occurrence: DE)
  Receive Date: 20140528
  Receipt Date: 20140528
  Transmission Date: 20141212
  Serious: Yes (Other)
  Sender: FDA-Public Use
  Company Number: DE-VERTEX PHARMACEUTICALS INC-2014-002524

PATIENT
  Age: 56 Year
  Sex: Male
  Weight: 69 kg

DRUGS (7)
  1. INCIVO [Suspect]
     Indication: HEPATITIS C
     Dosage: IN THREE DOSES EVERY 8 HOURS (THRICE DAILY
     Route: 048
  2. TACROLIMUS [Interacting]
     Indication: LIVER TRANSPLANT
     Dosage: UNK
     Route: 065
  3. TACROLIMUS [Interacting]
     Indication: IMMUNOSUPPRESSION
     Dosage: UNK
     Route: 065
  4. PEGINTERFERON ALFA-2A [Suspect]
     Indication: HEPATITIS C
     Dosage: 180.25 MG, QW
     Route: 065
  5. RIBAVIRIN [Suspect]
     Indication: HEPATITIS C
     Dosage: 1200 MG, QD
     Route: 065
  6. RIBAVIRIN [Suspect]
     Dosage: 800 MG, QD
     Route: 065
  7. RIBAVIRIN [Suspect]
     Dosage: 1000 MG, QD
     Route: 065

REACTIONS (2)
  - Anaemia [Unknown]
  - Drug interaction [Unknown]
